FAERS Safety Report 9557879 (Version 1)
Quarter: 2013Q3

REPORT INFORMATION
  Report Type: Report from Study
  Country: FR (occurrence: FR)
  Receive Date: 20130926
  Receipt Date: 20130926
  Transmission Date: 20140515
  Serious: Yes (Life-Threatening)
  Sender: FDA-Public Use
  Company Number: FR-BRISTOL-MYERS SQUIBB COMPANY-19410950

PATIENT
  Age: 66 Year
  Sex: Female

DRUGS (20)
  1. CARBOPLATIN [Suspect]
     Indication: OVARIAN CANCER
     Dosage: DATE OF LAST DOSE: 13AUG2013
     Route: 065
     Dates: start: 20130703
  2. PACLITAXEL [Suspect]
     Indication: OVARIAN CANCER
     Dosage: DATE OF LAST DOSE: 13AUG2013
     Route: 065
     Dates: start: 20130703
  3. AMOXICILLINE [Concomitant]
     Dates: start: 20130827, end: 20130901
  4. AERIUS [Concomitant]
     Dosage: SEP2012-11JUL2013;?16JUL2013-ONG
     Dates: start: 201209
  5. ATARAX [Concomitant]
     Dates: start: 201209
  6. LANSOYL [Concomitant]
  7. SPIRONOLACTONE [Concomitant]
     Dates: start: 201306
  8. MEDROL [Concomitant]
     Dosage: 02-03JUL2013;?22-23JUL2013;?12-13AUG2013
     Dates: start: 20130702, end: 20130813
  9. EMEND [Concomitant]
     Dosage: 03-05JUL2013;?23-25JUL2013
     Dates: start: 20130703, end: 20130725
  10. RANIPLEX [Concomitant]
     Dosage: 03-03JUL2013;?23-23JUL2013;?13-13AUG2013
     Dates: start: 20130703, end: 20130813
  11. POLARAMINE [Concomitant]
     Dosage: 03-03JUL2013;?23-23JUL2013;?13-13AUG2013
     Dates: start: 20130703
  12. ZOFRAN [Concomitant]
     Dosage: 03-03JUL2013;?23-23JUL2013;?13-13AUG2013
     Dates: start: 20130703
  13. GAVISCON [Concomitant]
     Dates: start: 20130706
  14. INEXIUM [Concomitant]
     Dosage: 05-08JUL2013;?24JUL2013-ONG
     Dates: start: 20130705
  15. PARACETAMOL [Concomitant]
     Dates: start: 20130723, end: 20130723
  16. DEXAMETHASONE [Concomitant]
     Dates: start: 20130723, end: 20130723
  17. XYZALL [Concomitant]
     Dates: start: 20130812, end: 20130903
  18. MONURIL [Concomitant]
     Dates: start: 20130901, end: 20130901
  19. AMOXYCILLIN [Concomitant]
     Dates: start: 20130827, end: 20130901
  20. MOTILIUM [Concomitant]
     Dates: start: 20130724

REACTIONS (2)
  - Pulmonary embolism [Recovered/Resolved]
  - Cor pulmonale acute [Recovered/Resolved]
